FAERS Safety Report 10610004 (Version 2)
Quarter: 2015Q1

REPORT INFORMATION
  Report Type: Spontaneous
  Country: US (occurrence: US)
  Receive Date: 20141126
  Receipt Date: 20150114
  Transmission Date: 20150720
  Serious: No
  Sender: FDA-Public Use
  Company Number: US-SHIRE-US201407686

PATIENT
  Age: 3 Year
  Sex: Male

DRUGS (4)
  1. CLONIDINE. [Concomitant]
     Active Substance: CLONIDINE
     Indication: PRODUCT USED FOR UNKNOWN INDICATION
     Dosage: UNK, UNKNOWN
     Route: 065
  2. RISPERDAL [Concomitant]
     Active Substance: RISPERIDONE
     Indication: PRODUCT USED FOR UNKNOWN INDICATION
     Dosage: UNK, UNKNOWN
     Route: 065
  3. INTUNIV [Suspect]
     Active Substance: GUANFACINE HYDROCHLORIDE
     Indication: ATTENTION DEFICIT/HYPERACTIVITY DISORDER
     Dosage: 1 MG, 2X/DAY:BID
     Route: 048
     Dates: start: 201401
  4. DEPAKOTE [Concomitant]
     Active Substance: DIVALPROEX SODIUM
     Indication: PRODUCT USED FOR UNKNOWN INDICATION
     Dosage: UNK, UNKNOWN
     Route: 065

REACTIONS (4)
  - Inappropriate schedule of drug administration [Not Recovered/Not Resolved]
  - Drug effect decreased [Unknown]
  - Product use issue [Not Recovered/Not Resolved]
  - Aggression [Unknown]

NARRATIVE: CASE EVENT DATE: 2014
